FAERS Safety Report 8962747 (Version 5)
Quarter: 2013Q1

REPORT INFORMATION
  Report Type: Spontaneous
  Country: BR (occurrence: BR)
  Receive Date: 20121213
  Receipt Date: 20130122
  Transmission Date: 20140127
  Serious: Yes (Death, Life-Threatening, Hospitalization, Disabling)
  Sender: FDA-Public Use
  Company Number: BR-B.I. PHARMACEUTICALS,INC./RIDGEFIELD-2012-BR-01386BR

PATIENT
  Age: 76 Year
  Sex: Female

DRUGS (7)
  1. PRADAXA [Suspect]
     Indication: ATRIAL FIBRILLATION
     Dosage: 220 MG
     Dates: start: 2012, end: 201212
  2. TYLEX [Concomitant]
  3. CIPROFLOXACIN [Concomitant]
  4. LOSARTAN [Concomitant]
  5. DAFLON [Concomitant]
  6. FLEBON [Concomitant]
  7. CARVEDILOL [Concomitant]

REACTIONS (5)
  - Shock haemorrhagic [Fatal]
  - Haematochezia [Not Recovered/Not Resolved]
  - Renal failure [Not Recovered/Not Resolved]
  - Melaena [Not Recovered/Not Resolved]
  - Depressed level of consciousness [Not Recovered/Not Resolved]
